FAERS Safety Report 9303301 (Version 1)
Quarter: 2013Q2

REPORT INFORMATION
  Report Type: Spontaneous
  Country: US (occurrence: US)
  Receive Date: 20130522
  Receipt Date: 20130522
  Transmission Date: 20140414
  Serious: No
  Sender: FDA-Public Use
  Company Number: US-009507513-1305USA006015

PATIENT
  Sex: Female
  Weight: 47.17 kg

DRUGS (2)
  1. IMPLANON [Suspect]
     Indication: CONTRACEPTION
  2. XANAX [Suspect]
     Dosage: UNK
     Route: 067
     Dates: start: 2008

REACTIONS (4)
  - Menstruation irregular [Unknown]
  - Rash [Unknown]
  - Rash [Unknown]
  - Incorrect drug administration duration [Not Recovered/Not Resolved]
